FAERS Safety Report 10606598 (Version 1)
Quarter: 2014Q4

REPORT INFORMATION
  Report Type: Spontaneous
  Country: US (occurrence: None)
  Receive Date: 20141124
  Receipt Date: 20141124
  Transmission Date: 20150529
  Serious: Yes (Hospitalization)
  Sender: FDA-Public Use
  Company Number: None

PATIENT
  Age: 31 Year
  Sex: Female
  Weight: 93 kg

DRUGS (1)
  1. PACLITAXEL. [Suspect]
     Active Substance: PACLITAXEL
     Dosage: PATIENT CONTINUED TREATMENT WITHOUT DELAY OF MODIFICATION
     Dates: end: 20141103

REACTIONS (2)
  - Vaginal haemorrhage [None]
  - Anaemia [None]

NARRATIVE: CASE EVENT DATE: 20141106
